FAERS Safety Report 8082454-5 (Version None)
Quarter: 2012Q1

REPORT INFORMATION
  Report Type: 
  Country: None (occurrence: None)
  Receive Date: 20120127
  Receipt Date: 20110309
  Transmission Date: 20120608
  Serious: No
  Sender: FDA-Public Use
  Company Number: US-ABBOTT-11P-163-0706420-00

PATIENT
  Sex: Male

DRUGS (4)
  1. REMICADE [Suspect]
     Indication: CROHN'S DISEASE
     Dates: end: 20080101
  2. IMODIUM [Concomitant]
     Indication: CROHN'S DISEASE
     Dosage: 4-6 DAILY
  3. HUMIRA [Suspect]
     Indication: CROHN'S DISEASE
     Dates: start: 20080922
  4. QUESTRAN [Concomitant]
     Indication: GASTROINTESTINAL DISORDER

REACTIONS (1)
  - TOTAL LUNG CAPACITY DECREASED [None]
